FAERS Safety Report 7590576-8 (Version None)
Quarter: 2011Q3

REPORT INFORMATION
  Report Type: 
  Country: None (occurrence: None)
  Receive Date: 20110705
  Receipt Date: 20110623
  Transmission Date: 20111222
  Serious: Yes (Hospitalization)
  Sender: FDA-Public Use
  Company Number: US-JNJFOC-20110600769

PATIENT
  Sex: Female
  Weight: 32 kg

DRUGS (5)
  1. MERCAPTOPURINE [Suspect]
     Dates: start: 20110501
  2. REMICADE [Suspect]
     Route: 042
     Dates: start: 20100420
  3. PREDNISONE [Concomitant]
  4. MERCAPTOPURINE [Suspect]
     Indication: CROHN'S DISEASE
     Dosage: DOUBLE THE DOSE
     Dates: start: 20110519
  5. REMICADE [Suspect]
     Indication: CROHN'S DISEASE
     Route: 042
     Dates: start: 20110412, end: 20110412

REACTIONS (1)
  - PANCREATITIS [None]
